FAERS Safety Report 8475745-7 (Version None)
Quarter: 2012Q2

REPORT INFORMATION
  Report Type: 
  Country: None (occurrence: None)
  Receive Date: 20120628
  Receipt Date: 20120621
  Transmission Date: 20120825
  Serious: Yes (Hospitalization)
  Sender: FDA-Public Use
  Company Number: US-TEVA-341304USA

PATIENT
  Age: 33 Year
  Sex: Female

DRUGS (1)
  1. COPAXONE [Suspect]
     Indication: MULTIPLE SCLEROSIS
     Route: 058
     Dates: start: 20120303

REACTIONS (5)
  - VOMITING [None]
  - DRUG EFFECT DECREASED [None]
  - DIZZINESS [None]
  - MULTIPLE SCLEROSIS RELAPSE [None]
  - VISION BLURRED [None]
